FAERS Safety Report 9903109 (Version 1)
Quarter: 2014Q1

REPORT INFORMATION
  Report Type: Report from Study
  Country: US (occurrence: US)
  Receive Date: 20140217
  Receipt Date: 20140217
  Transmission Date: 20141002
  Serious: Yes (Other)
  Sender: FDA-Public Use
  Company Number: US-BAXTER-2014BAX008214

PATIENT
  Sex: 0

DRUGS (1)
  1. FORANE (ISOFLURANE, USP) [Suspect]
     Indication: JOINT ARTHROPLASTY
     Route: 065

REACTIONS (1)
  - Anaesthetic complication neurological [Unknown]
